FAERS Safety Report 15112042 (Version 1)
Quarter: 2018Q3

REPORT INFORMATION
  Report Type: Spontaneous
  Country: CN (occurrence: CN)
  Receive Date: 20180705
  Receipt Date: 20180705
  Transmission Date: 20181010
  Serious: Yes (Other)
  Sender: FDA-Public Use
  Company Number: CN-ASTRAZENECA-2018SE87186

PATIENT
  Sex: Female
  Weight: 57 kg

DRUGS (2)
  1. SODIUM CHLORIDE. [Suspect]
     Active Substance: SODIUM CHLORIDE
     Indication: VEHICLE SOLUTION USE
     Route: 042
     Dates: start: 20180507, end: 20180507
  2. NEXIUM [Suspect]
     Active Substance: ESOMEPRAZOLE MAGNESIUM
     Indication: ABDOMINAL PAIN
     Route: 042
     Dates: start: 20180507, end: 20180507

REACTIONS (1)
  - Convulsions local [Recovering/Resolving]
